FAERS Safety Report 15825344 (Version 2)
Quarter: 2020Q3

REPORT INFORMATION
  Report Type: Report from Study
  Country: DE (occurrence: DE)
  Receive Date: 20190115
  Receipt Date: 20200710
  Transmission Date: 20201102
  Serious: Yes (Other)
  Sender: FDA-Public Use
  Company Number: DE-ROCHE-2244199

PATIENT
  Age: 60 Year
  Sex: Male
  Weight: 82 kg

DRUGS (4)
  1. ALLOPURINOL. [Concomitant]
     Active Substance: ALLOPURINOL
     Route: 048
     Dates: start: 20180227, end: 20190108
  2. OBINUTUZUMAB. [Suspect]
     Active Substance: OBINUTUZUMAB
     Indication: CHRONIC LYMPHOCYTIC LEUKAEMIA
     Dosage: ON 27/JUN/2018, RECIVED LAST DOSE OF OBINUTUZIMAB PRIOR TO ADVERSE EVENT
     Route: 042
     Dates: start: 20180305
  3. VENETOCLAX. [Suspect]
     Active Substance: VENETOCLAX
     Indication: CHRONIC LYMPHOCYTIC LEUKAEMIA
     Dosage: ON 08/JAN/2019, HE RECEIVED LAST DOSE?04 TABLETS 100 MG
     Route: 048
     Dates: start: 20180228
  4. ACICLOVIR [Concomitant]
     Active Substance: ACYCLOVIR

REACTIONS (1)
  - Optic ischaemic neuropathy [Recovered/Resolved with Sequelae]

NARRATIVE: CASE EVENT DATE: 20181222
